FAERS Safety Report 25127943 (Version 13)
Quarter: 2025Q4

REPORT INFORMATION
  Report Type: Report from Study
  Country: EU (occurrence: EU)
  Receive Date: 20250327
  Receipt Date: 20251104
  Transmission Date: 20260117
  Serious: Yes (Hospitalization, Other)
  Sender: ABBVIE
  Company Number: EU-ABBVIE-6193484

PATIENT
  Age: 70 Year
  Sex: Male

DRUGS (19)
  1. FOSCARBIDOPA\FOSLEVODOPA [Suspect]
     Active Substance: FOSCARBIDOPA\FOSLEVODOPA
     Indication: Parkinson^s disease
     Dosage: 240 MG + 12 MG ?FREQUENCY: LO:2.9;HI:0.57;BA:0.46;LOW:0.35;EX:0.3?LAST ADMIN DATE: MAR 2025
     Route: 058
     Dates: start: 20250311
  2. FOSCARBIDOPA\FOSLEVODOPA [Suspect]
     Active Substance: FOSCARBIDOPA\FOSLEVODOPA
     Dosage: 240 MG + 12 MG?FREQUENCY: HI:0.67;BA:0.59;LOW:0.39;EX:0.3?START DATE: MAR 2025
     Route: 058
     Dates: end: 20250318
  3. FOSCARBIDOPA\FOSLEVODOPA [Suspect]
     Active Substance: FOSCARBIDOPA\FOSLEVODOPA
     Dosage: 240 MG + 12 MG?FREQUENCY: HI:0.69;BA:0.64;LOW:0.39;EX:0.2
     Route: 058
     Dates: start: 20250318, end: 20250805
  4. FOSCARBIDOPA\FOSLEVODOPA [Suspect]
     Active Substance: FOSCARBIDOPA\FOSLEVODOPA
     Dosage: 240 MG + 12 MG?FREQUENCY: HI:0.69;BA:0.64;LOW:0.39;EX:0.2 (16H)
     Route: 058
     Dates: start: 20250805, end: 20250817
  5. FOSCARBIDOPA\FOSLEVODOPA [Suspect]
     Active Substance: FOSCARBIDOPA\FOSLEVODOPA
     Dosage: 240 MG + 12 MG?FREQUENCY: HI:0.69;BA:0.64;LOW:0.41;EX:0.2 (16H)?LOW DOSE: 0.41 CC/H; BASE: 0.64 C...
     Route: 058
     Dates: start: 20250817
  6. CLONAZEPAM [Concomitant]
     Active Substance: CLONAZEPAM
     Indication: Product used for unknown indication
     Dosage: FORM STRENGTH: 0.5 MILLIGRAM?START DATE: BEFORE DUODOPA.
     Route: 048
  7. ESCITALOPRAM [Concomitant]
     Active Substance: ESCITALOPRAM OXALATE
     Indication: Product used for unknown indication
     Dosage: FORM STRENGTH: 20 MILLIGRAM?START DATE: BEFORE DUODOPA
     Route: 048
  8. MIRABEGRON [Concomitant]
     Active Substance: MIRABEGRON
     Indication: Product used for unknown indication
     Dosage: 1 TABLET?START DATE TEXT: BEFORE DUODOPA
     Route: 048
  9. BUDESONIDE [Concomitant]
     Active Substance: BUDESONIDE
     Indication: Product used for unknown indication
     Dosage: FORM STRENGTH: 200 MICROGRAM ?RESPIRATORY (INHALATION)?START DATE : BEFORE DUODOPA.
  10. DIAZEPAM [Concomitant]
     Active Substance: DIAZEPAM
     Indication: Product used for unknown indication
     Dosage: FORM STRENGTH: 10 MILLIGRAM.?START DATE : BEFORE DUODOPA.
     Route: 048
  11. DOMPERIDONE [Concomitant]
     Active Substance: DOMPERIDONE
     Indication: Product used for unknown indication
     Dosage: FORM STRENGTH: 1 MILLIGRAM/MILLILITERS?START DATE: BEFORE DUODOPA?10 MILLIGRAM
     Route: 048
  12. TROSPIUM CHLORIDE [Concomitant]
     Active Substance: TROSPIUM CHLORIDE
     Indication: Product used for unknown indication
     Dosage: FORM STRENGTH: 20 MILLIGRAM ?START DATE: BEFORE DUODOPA.
     Route: 048
  13. ALBUTEROL [Concomitant]
     Active Substance: ALBUTEROL
     Indication: Product used for unknown indication
     Dosage: FORM STRENGTH: 100 MICROGRAM, RESPIRATORY (INHALATION)?START DATE : BEFORE DUODOPA.
  14. QUETIAPINE [Concomitant]
     Active Substance: QUETIAPINE
     Indication: Product used for unknown indication
     Dosage: FORM STRENGTH: 50 MILLIGRAM?START DATE: BEFORE DUODOPA.
     Route: 048
  15. QUETIAPINE [Concomitant]
     Active Substance: QUETIAPINE
     Indication: Product used for unknown indication
     Dosage: FORM STRENGTH: 12.5 MILLIGRAM?START DATE : BEFORE DUODOPA
  16. TAMSULOSIN [Concomitant]
     Active Substance: TAMSULOSIN
     Indication: Product used for unknown indication
     Dosage: 1 TABLET.?START DATE: BEFORE DUODOPA
     Route: 048
  17. RIVASTIGMINE [Concomitant]
     Active Substance: RIVASTIGMINE
     Indication: Product used for unknown indication
     Dosage: 2 CAPSULE, ?FORM STRENGTH: 6 MILLIGRAM?START DATE : BEFORE DUODOPA.
     Route: 048
  18. PANTOPRAZOLE [Concomitant]
     Active Substance: PANTOPRAZOLE
     Indication: Product used for unknown indication
     Dosage: FORM STRENGTH: 20 MILLIGRAM?START DATE : BEFORE DUODOPA
     Route: 048
  19. ENTACAPONE [Concomitant]
     Active Substance: ENTACAPONE
     Indication: Product used for unknown indication
     Dosage: TIME INTERVAL: 0.33333333 DAYS: FORM STRENGTH: 200 MILLIGRAM ?START DATE: BEFORE DUODOPA
     Route: 048

REACTIONS (8)
  - Hallucination [Not Recovered/Not Resolved]
  - Dyskinesia [Recovering/Resolving]
  - Drug abuse [Recovered/Resolved]
  - On and off phenomenon [Recovering/Resolving]
  - Drug abuse [Recovered/Resolved]
  - Confusional state [Recovering/Resolving]
  - Persecutory delusion [Recovering/Resolving]
  - Off label use [Not Recovered/Not Resolved]

NARRATIVE: CASE EVENT DATE: 20250301
